FAERS Safety Report 21923997 (Version 4)
Quarter: 2023Q2

REPORT INFORMATION
  Report Type: Report from Study
  Country: US (occurrence: US)
  Receive Date: 20230130
  Receipt Date: 20230504
  Transmission Date: 20230721
  Serious: Yes (Hospitalization, Other)
  Sender: FDA-Public Use
  Company Number: US-002147023-NVSC2023US016773

PATIENT
  Sex: Male

DRUGS (1)
  1. ILARIS [Suspect]
     Active Substance: CANAKINUMAB
     Indication: Pyrexia
     Dosage: 150 MG, EVERY 14 DAYS
     Route: 058
     Dates: start: 20191108

REACTIONS (3)
  - Cerebrovascular accident [Unknown]
  - Pain [Unknown]
  - Migraine [Not Recovered/Not Resolved]
